FAERS Safety Report 4523072-2 (Version None)
Quarter: 2004Q4

REPORT INFORMATION
  Report Type: 
  Country: None (occurrence: None)
  Receive Date: 20041208
  Receipt Date: 20041201
  Transmission Date: 20050328
  Serious: Yes (Life-Threatening, Other)
  Sender: FDA-Public Use
  Company Number: 2004081882

PATIENT
  Age: 57 Year
  Sex: Male
  Weight: 70 kg

DRUGS (4)
  1. SORTIS (ATORVASTATIN) [Suspect]
     Indication: ARTERIAL OCCLUSIVE DISEASE
     Dosage: 5 MG (5 MG, 1 IN 1 D), ORAL
     Route: 048
     Dates: start: 19971127, end: 19971215
  2. ASPIRIN [Concomitant]
  3. CAPTOPRIL [Concomitant]
  4. THIOCTIC ACID (THIOCTIC ACID) [Concomitant]

REACTIONS (4)
  - AGITATION [None]
  - CONFUSIONAL STATE [None]
  - HYPOGLYCAEMIA [None]
  - LOSS OF CONSCIOUSNESS [None]
